FAERS Safety Report 23154145 (Version 1)
Quarter: 2023Q4

REPORT INFORMATION
  Report Type: Spontaneous
  Country: US (occurrence: None)
  Receive Date: 20231107
  Receipt Date: 20231107
  Transmission Date: 20240110
  Serious: Yes (Other)
  Sender: FDA-Public Use
  Company Number: 2023A246602

PATIENT

DRUGS (1)
  1. TAGRISSO [Suspect]
     Active Substance: OSIMERTINIB
     Indication: Lung carcinoma cell type unspecified stage IV
     Route: 048
     Dates: start: 202202, end: 20230118

REACTIONS (11)
  - Pneumonitis [Unknown]
  - Pleural effusion [Unknown]
  - Pain [Unknown]
  - Vomiting [Unknown]
  - Nausea [Unknown]
  - Retching [Unknown]
  - Migraine [Unknown]
  - Candida infection [Unknown]
  - Weight decreased [Unknown]
  - Pulmonary mass [Unknown]
  - Dyspnoea [Unknown]
